FAERS Safety Report 17482051 (Version 1)
Quarter: 2020Q1

REPORT INFORMATION
  Report Type: Spontaneous
  Country: US (occurrence: US)
  Receive Date: 20200302
  Receipt Date: 20200302
  Transmission Date: 20200409
  Serious: No
  Sender: FDA-Public Use
  Company Number: US-JNJFOC-20200240640

PATIENT
  Sex: Male
  Weight: 58.57 kg

DRUGS (1)
  1. ZYRTEC [Suspect]
     Active Substance: CETIRIZINE HYDROCHLORIDE
     Indication: MULTIPLE ALLERGIES
     Dosage: FOR 15 DAYS
     Route: 048
     Dates: start: 202002

REACTIONS (1)
  - Drug ineffective [Unknown]
